FAERS Safety Report 9214946 (Version 2)
Quarter: 2013Q2

REPORT INFORMATION
  Report Type: Report from Study
  Country: JP (occurrence: JP)
  Receive Date: 20130405
  Receipt Date: 20130516
  Transmission Date: 20140414
  Serious: Yes (Hospitalization)
  Sender: FDA-Public Use
  Company Number: JP-GLAXOSMITHKLINE-B0879569A

PATIENT
  Age: 59 Year
  Sex: Male

DRUGS (13)
  1. PAXIL [Suspect]
     Indication: DEPRESSION
     Dosage: 12.5MG PER DAY
     Route: 048
     Dates: start: 20121126, end: 20121217
  2. ZYPREXA [Concomitant]
     Indication: DEPRESSION
     Route: 048
  3. LITHIUM CARBONATE [Concomitant]
     Route: 048
  4. RIVOTRIL [Concomitant]
     Route: 048
  5. TASMOLIN [Concomitant]
     Route: 048
  6. MAGNESIUM OXIDE [Concomitant]
     Route: 048
  7. GASMOTIN [Concomitant]
     Route: 048
  8. PYRETHIA [Concomitant]
     Route: 048
  9. LINTON [Concomitant]
     Route: 048
  10. SELBEX [Concomitant]
     Route: 048
  11. NELUROLEN [Concomitant]
     Route: 048
  12. SENNOSIDE [Concomitant]
     Route: 048
  13. OMEPRAZOLE [Concomitant]
     Route: 048

REACTIONS (2)
  - Schizophrenia [Recovered/Resolved]
  - Vomiting [Recovered/Resolved]
